FAERS Safety Report 18690933 (Version 2)
Quarter: 2022Q4

REPORT INFORMATION
  Report Type: Report from Study
  Country: SE (occurrence: SE)
  Receive Date: 20210101
  Receipt Date: 20221230
  Transmission Date: 20230113
  Serious: Yes (Hospitalization)
  Sender: FDA-Public Use
  Company Number: SE-TAKEDA-SE201946061

PATIENT
  Age: 65 Year
  Sex: Female

DRUGS (23)
  1. TEDUGLUTIDE [Suspect]
     Active Substance: TEDUGLUTIDE
     Indication: Short-bowel syndrome
     Dosage: 1.9 MILLIGRAM, QD
     Route: 042
     Dates: start: 20141216, end: 20200220
  2. TEDUGLUTIDE [Suspect]
     Active Substance: TEDUGLUTIDE
     Indication: Short-bowel syndrome
     Dosage: 1.9 MILLIGRAM, QD
     Route: 042
     Dates: start: 20141216, end: 20200220
  3. TEDUGLUTIDE [Suspect]
     Active Substance: TEDUGLUTIDE
     Indication: Short-bowel syndrome
     Dosage: 1.9 MILLIGRAM, QD
     Route: 042
     Dates: start: 20141216, end: 20200220
  4. TEDUGLUTIDE [Suspect]
     Active Substance: TEDUGLUTIDE
     Indication: Short-bowel syndrome
     Dosage: 1.9 MILLIGRAM, QD
     Route: 042
     Dates: start: 20141216, end: 20200220
  5. TEDUGLUTIDE [Suspect]
     Active Substance: TEDUGLUTIDE
     Dosage: 3.4 MILLIGRAM, QD
     Route: 042
     Dates: start: 20200220
  6. TEDUGLUTIDE [Suspect]
     Active Substance: TEDUGLUTIDE
     Dosage: 3.4 MILLIGRAM, QD
     Route: 042
     Dates: start: 20200220
  7. TEDUGLUTIDE [Suspect]
     Active Substance: TEDUGLUTIDE
     Dosage: 3.4 MILLIGRAM, QD
     Route: 042
     Dates: start: 20200220
  8. TEDUGLUTIDE [Suspect]
     Active Substance: TEDUGLUTIDE
     Dosage: 3.4 MILLIGRAM, QD
     Route: 042
     Dates: start: 20200220
  9. SODIUM CHLORIDE [Concomitant]
     Active Substance: SODIUM CHLORIDE
  10. DOLCONTIN [MORPHINE SULFATE] [Concomitant]
  11. CYANOCOBALAMIN [Concomitant]
     Active Substance: CYANOCOBALAMIN
  12. CIPRALEX [Concomitant]
     Active Substance: ESCITALOPRAM OXALATE
  13. MIRTAZAPINE [Concomitant]
     Active Substance: MIRTAZAPINE
  14. IMOVANE [Concomitant]
     Active Substance: ZOPICLONE
  15. FURADANTIN [Concomitant]
     Active Substance: NITROFURANTOIN
  16. OXYCODONE [Concomitant]
     Active Substance: OXYCODONE
  17. RESONIUM [Concomitant]
     Active Substance: SODIUM POLYSTYRENE SULFONATE
  18. METRONIDAZOLE [Concomitant]
     Active Substance: METRONIDAZOLE
  19. CIPROFLOXACIN [Concomitant]
     Active Substance: CIPROFLOXACIN
  20. SODIUM CHLORIDE [Concomitant]
     Active Substance: SODIUM CHLORIDE
     Indication: Hypercalcaemia
     Dosage: 3000.00 MILLILITER, BID
     Route: 042
     Dates: start: 20221216, end: 20221219
  21. BETAPRED [Concomitant]
     Active Substance: BETAMETHASONE SODIUM PHOSPHATE
     Indication: Renal failure
     Dosage: 1.25 MILLIGRAM
     Route: 048
     Dates: start: 20210813
  22. BETAPRED [Concomitant]
     Active Substance: BETAMETHASONE SODIUM PHOSPHATE
     Dosage: 1.5 MILLIGRAM
     Route: 048
     Dates: start: 20210807, end: 20210812
  23. BETAPRED [Concomitant]
     Active Substance: BETAMETHASONE SODIUM PHOSPHATE
     Dosage: 2.5 MILLIGRAM
     Route: 065
     Dates: start: 20210712, end: 20210806

REACTIONS (1)
  - Urinary tract infection [Recovered/Resolved]

NARRATIVE: CASE EVENT DATE: 20181029
